FAERS Safety Report 12169206 (Version 2)
Quarter: 2016Q1

REPORT INFORMATION
  Report Type: Other
  Country: CO (occurrence: CO)
  Receive Date: 20160310
  Receipt Date: 20160319
  Transmission Date: 20160526
  Serious: Yes (Death, Hospitalization, Other)
  Sender: FDA-Public Use
  Company Number: CO-SHIRE-CO201602905

PATIENT
  Age: 10 Year
  Sex: Male
  Weight: 26 kg

DRUGS (1)
  1. ELAPRASE [Suspect]
     Active Substance: IDURSULFASE
     Indication: MUCOPOLYSACCHARIDOSIS II
     Dosage: 0.5 MG/KG(2 VIALS), 1X/WEEK
     Route: 041
     Dates: end: 20160227

REACTIONS (3)
  - Cardio-respiratory arrest [Fatal]
  - Pneumonia [Unknown]
  - Disease progression [Fatal]

NARRATIVE: CASE EVENT DATE: 20160304
